FAERS Safety Report 20722315 (Version 2)
Quarter: 2022Q2

REPORT INFORMATION
  Report Type: Other
  Country: US (occurrence: None)
  Receive Date: 20220418
  Receipt Date: 20220527
  Transmission Date: 20220721
  Serious: Yes (Death)
  Sender: FDA-Public Use
  Company Number: US-ROCHE-2879851

PATIENT
  Sex: Female

DRUGS (2)
  1. OCREVUS [Suspect]
     Active Substance: OCRELIZUMAB
     Indication: Multiple sclerosis
     Route: 042
  2. VALIUM [Suspect]
     Active Substance: DIAZEPAM
     Indication: Multiple sclerosis
     Route: 065

REACTIONS (2)
  - COVID-19 [Fatal]
  - Drug hypersensitivity [Unknown]
